FAERS Safety Report 18290124 (Version 1)
Quarter: 2020Q3

REPORT INFORMATION
  Report Type: Spontaneous
  Country: ES (occurrence: ES)
  Receive Date: 20200921
  Receipt Date: 20200921
  Transmission Date: 20201103
  Serious: Yes (Hospitalization, Other)
  Sender: FDA-Public Use
  Company Number: ES-ALVOGEN-2020-ALVOGEN-114355

PATIENT
  Age: 5 Month
  Sex: Male

DRUGS (4)
  1. PROPRANOLOL [Concomitant]
     Active Substance: PROPRANOLOL HYDROCHLORIDE
     Indication: SUPRAVENTRICULAR TACHYCARDIA
     Dosage: 2 MG/KG/DAY
  2. PROPRANOLOL [Concomitant]
     Active Substance: PROPRANOLOL HYDROCHLORIDE
     Indication: SUPRAVENTRICULAR TACHYCARDIA
     Dosage: 3 MG/KG/DAY
  3. FLECAINIDE [Suspect]
     Active Substance: FLECAINIDE
     Indication: SUPRAVENTRICULAR TACHYCARDIA
     Dosage: FLECAINIDE 4 MG/KG/DAY
  4. FLECAINIDE [Suspect]
     Active Substance: FLECAINIDE
     Indication: SUPRAVENTRICULAR TACHYCARDIA
     Dosage: FLECAINIDE 1.33 MG/KG/DAY

REACTIONS (8)
  - Ventricular tachycardia [Recovered/Resolved]
  - Cardiac output decreased [Unknown]
  - Product administration error [Unknown]
  - Atrioventricular block [Recovered/Resolved]
  - Respiratory distress [Unknown]
  - Unevaluable event [Unknown]
  - Bundle branch block right [Recovered/Resolved]
  - Toxicity to various agents [Unknown]
